FAERS Safety Report 9129527 (Version 1)
Quarter: 2013Q1

REPORT INFORMATION
  Report Type: Spontaneous
  Country: US (occurrence: US)
  Receive Date: 20130125
  Receipt Date: 20130125
  Transmission Date: 20140127
  Serious: No
  Sender: FDA-Public Use
  Company Number: US-PFIZER INC-2013029617

PATIENT
  Sex: 0

DRUGS (2)
  1. PREMARIN [Suspect]
     Dosage: UNK
  2. ZOLOFT [Suspect]
     Dosage: UNK

REACTIONS (4)
  - Arthropathy [Unknown]
  - Hot flush [Unknown]
  - Irritability [Unknown]
  - Discomfort [Unknown]
